FAERS Safety Report 22306605 (Version 3)
Quarter: 2023Q2

REPORT INFORMATION
  Report Type: Spontaneous
  Country: AU (occurrence: AU)
  Receive Date: 20230511
  Receipt Date: 20230629
  Transmission Date: 20230721
  Serious: Yes (Life-Threatening, Hospitalization, Other)
  Sender: FDA-Public Use
  Company Number: AU-ABBVIE-4762553

PATIENT
  Sex: Male
  Weight: 50 kg

DRUGS (5)
  1. RINVOQ [Suspect]
     Active Substance: UPADACITINIB
     Indication: Dermatitis atopic
     Dosage: DOSE INCREASED
     Route: 048
     Dates: start: 202303, end: 20230429
  2. RINVOQ [Suspect]
     Active Substance: UPADACITINIB
     Indication: Dermatitis atopic
     Route: 048
     Dates: start: 2022
  3. agno3 [Concomitant]
     Indication: Product used for unknown indication
     Route: 061
  4. MINERAL OIL\PETROLATUM [Concomitant]
     Active Substance: MINERAL OIL\PETROLATUM
     Indication: Product used for unknown indication
     Route: 065
  5. VENTOLIN [Concomitant]
     Active Substance: ALBUTEROL SULFATE
     Indication: Product used for unknown indication
     Route: 055

REACTIONS (9)
  - Staphylococcal infection [Recovered/Resolved]
  - Therapeutic product effect incomplete [Unknown]
  - Brain abscess [Recovering/Resolving]
  - Sinusitis [Unknown]
  - Skin lesion [Recovering/Resolving]
  - Eczema [Unknown]
  - Streptococcal infection [Recovered/Resolved]
  - Pruritus [Unknown]
  - Bacterial infection [Unknown]

NARRATIVE: CASE EVENT DATE: 20230101
